FAERS Safety Report 15133938 (Version 1)
Quarter: 2018Q3

REPORT INFORMATION
  Report Type: Spontaneous
  Country: US (occurrence: US)
  Receive Date: 20180615
  Receipt Date: 20180615
  Transmission Date: 20181010
  Serious: Yes (Other)
  Sender: FDA-Public Use
  Company Number: None

PATIENT
  Age: 66 Year
  Sex: Male
  Weight: 90 kg

DRUGS (1)
  1. PRIVIGEN [Suspect]
     Active Substance: HUMAN IMMUNOGLOBULIN G
     Indication: POLYNEUROPATHY
     Route: 042
     Dates: start: 20180613, end: 20180613

REACTIONS (5)
  - Nausea [None]
  - Cough [None]
  - Pyrexia [None]
  - Abdominal discomfort [None]
  - Lethargy [None]

NARRATIVE: CASE EVENT DATE: 20180613
